FAERS Safety Report 21657382 (Version 1)
Quarter: 2022Q4

REPORT INFORMATION
  Report Type: Spontaneous
  Country: None (occurrence: US)
  Receive Date: 20221129
  Receipt Date: 20221129
  Transmission Date: 20230112
  Serious: Yes (Other)
  Sender: FDA-Public Use
  Company Number: US-Harrow Eye-2135348

PATIENT
  Age: 58 Year
  Sex: Female

DRUGS (1)
  1. MOXEZA [Suspect]
     Active Substance: MOXIFLOXACIN HYDROCHLORIDE
     Route: 061

REACTIONS (5)
  - Anterior chamber disorder [Recovered/Resolved]
  - Iridocyclitis [Recovered/Resolved]
  - Corneal oedema [Recovered/Resolved]
  - Visual acuity reduced [Recovered/Resolved]
  - Drug ineffective [Unknown]
